FAERS Safety Report 6460461-3 (Version None)
Quarter: 2009Q4

REPORT INFORMATION
  Report Type: 
  Country: None (occurrence: None)
  Receive Date: 20091130
  Receipt Date: 20091120
  Transmission Date: 20100525
  Serious: Yes (Other)
  Sender: FDA-Public Use
  Company Number: CN-ROCHE-670043

PATIENT
  Sex: Female
  Weight: 55.5 kg

DRUGS (3)
  1. MYCOPHENOLATE MOFETIL [Suspect]
     Indication: KIDNEY TRANSPLANT REJECTION
     Route: 048
     Dates: start: 20041210, end: 20090801
  2. PROGRAF [Concomitant]
     Indication: KIDNEY TRANSPLANT REJECTION
     Dosage: MANUFACTURED BY ASTELLAS.
     Route: 048
     Dates: start: 20041210
  3. BREDININ [Concomitant]
     Indication: KIDNEY TRANSPLANT REJECTION
     Dosage: MIZORIBINE INSTEAD OF MYCOPHENOLATE MOFETIL
     Dates: start: 20090801

REACTIONS (4)
  - BLOOD CREATININE INCREASED [None]
  - DIARRHOEA [None]
  - DYSPEPSIA [None]
  - WEIGHT DECREASED [None]
